FAERS Safety Report 5874819-4 (Version None)
Quarter: 2008Q3

REPORT INFORMATION
  Report Type: 
  Country: None (occurrence: None)
  Receive Date: 20080909
  Receipt Date: 20080902
  Transmission Date: 20090109
  Serious: Yes (Other)
  Sender: FDA-Public Use
  Company Number: IT-BAYER-200823404GPV

PATIENT
  Age: 61 Year
  Sex: Male

DRUGS (3)
  1. CIPROFLOXACIN HCL [Suspect]
     Indication: ORCHITIS
     Dosage: TOTAL DAILY DOSE: 1 G
     Route: 048
     Dates: start: 20080726, end: 20080726
  2. CIPROFLOXACIN HCL [Suspect]
     Dosage: TOTAL DAILY DOSE: 500 MG
     Route: 048
     Dates: start: 20080727, end: 20080729
  3. DELTACORTENE [Concomitant]
     Indication: DRUG USE FOR UNKNOWN INDICATION
     Dosage: TOTAL DAILY DOSE: 10 MG
     Route: 048

REACTIONS (1)
  - VASCULAR PURPURA [None]
